FAERS Safety Report 7883925-4 (Version None)
Quarter: 2011Q4

REPORT INFORMATION
  Report Type: 
  Country: None (occurrence: None)
  Receive Date: 20111102
  Receipt Date: 20111027
  Transmission Date: 20120403
  Serious: No
  Sender: FDA-Public Use
  Company Number: US-JNJFOC-20111012527

PATIENT
  Sex: Male

DRUGS (2)
  1. INVEGA SUSTENNA [Suspect]
     Indication: PRODUCT USED FOR UNKNOWN INDICATION
     Route: 030
     Dates: start: 20111001, end: 20111001
  2. INVEGA SUSTENNA [Suspect]
     Route: 030
     Dates: start: 20111001

REACTIONS (2)
  - MUSCULAR WEAKNESS [None]
  - INJECTION SITE NODULE [None]
